FAERS Safety Report 16640579 (Version 1)
Quarter: 2019Q3

REPORT INFORMATION
  Report Type: Report from Study
  Country: None (occurrence: US)
  Receive Date: 20190729
  Receipt Date: 20190729
  Transmission Date: 20191004
  Serious: Yes (Hospitalization)
  Sender: FDA-Public Use
  Company Number: US-ABBVIE-19K-163-2858599-00

PATIENT
  Age: 45 Year
  Sex: Female
  Weight: 138.47 kg

DRUGS (1)
  1. HUMIRA [Suspect]
     Active Substance: ADALIMUMAB
     Indication: RHEUMATOID ARTHRITIS
     Route: 058
     Dates: start: 20190712, end: 20190712

REACTIONS (10)
  - Nausea [Unknown]
  - Joint stiffness [Unknown]
  - Gait disturbance [Unknown]
  - Joint swelling [Unknown]
  - Dizziness [Unknown]
  - Anxiety [Unknown]
  - Arthralgia [Unknown]
  - Pain [Unknown]
  - Chest pain [Unknown]
  - Loss of personal independence in daily activities [Unknown]

NARRATIVE: CASE EVENT DATE: 201907
